FAERS Safety Report 5033996-8 (Version None)
Quarter: 2006Q2

REPORT INFORMATION
  Report Type: 
  Country: None (occurrence: None)
  Receive Date: 20060512
  Receipt Date: 20051129
  Transmission Date: 20061013
  Serious: Yes (Other)
  Sender: FDA-Public Use
  Company Number: HQWYE791101DEC05

PATIENT
  Age: 77 Year
  Sex: Male
  Weight: 59.02 kg

DRUGS (12)
  1. INDERAL LA [Suspect]
     Indication: HYPERTENSION
     Dosage: 80 MG 2X PER 1 DAY, ORAL
     Route: 048
  2. ATACAND [Concomitant]
  3. LISINOPRIL [Concomitant]
  4. PLAVIX [Concomitant]
  5. LIPITOR [Concomitant]
  6. PREVACID [Concomitant]
  7. ZANTAC [Concomitant]
  8. XANAX [Concomitant]
  9. PROSCAR (DOCUSATE SODIUM) [Concomitant]
  10. ASPIRIN [Concomitant]
  11. NIACIN [Concomitant]
  12. SURFAK (DOCUSATE CALCIUM) [Concomitant]

REACTIONS (1)
  - DRUG INEFFECTIVE [None]
